FAERS Safety Report 5760681-7 (Version None)
Quarter: 2008Q2

REPORT INFORMATION
  Report Type: 
  Country: None (occurrence: None)
  Receive Date: 20080606
  Receipt Date: 20080603
  Transmission Date: 20081010
  Serious: Yes (Hospitalization)
  Sender: FDA-Public Use
  Company Number: US-BRISTOL-MYERS SQUIBB COMPANY-14214837

PATIENT
  Age: 61 Year
  Sex: Male
  Weight: 88 kg

DRUGS (5)
  1. CARMUSTINE [Suspect]
     Dates: start: 20080327
  2. RITALIN [Suspect]
  3. THALIDOMIDE [Suspect]
     Dates: start: 20080327
  4. IRINOTECAN HCL [Concomitant]
     Indication: GLIOBLASTOMA MULTIFORME
     Dosage: 125 MG/M2 IV OVER 90MIN,DAY 1 + 15. FIRST COURSE ON 11-OCT-2007.
     Route: 042
     Dates: start: 20080313, end: 20080313
  5. BEVACIZUMAB [Concomitant]
     Indication: GLIOBLASTOMA MULTIFORME
     Dosage: 10 MG/KG IV OVER 90-30MIN DAYS 1-15. FIRST COURSE ON 11-OCT-2007.
     Route: 042
     Dates: start: 20080313, end: 20080313

REACTIONS (1)
  - CONVULSION [None]
